FAERS Safety Report 16725086 (Version 1)
Quarter: 2019Q3

REPORT INFORMATION
  Report Type: Spontaneous
  Country: US (occurrence: US)
  Receive Date: 20190704
  Receipt Date: 20190704
  Transmission Date: 20191005
  Serious: No
  Sender: FDA-Public Use
  Company Number: None

PATIENT
  Age: 68 Year
  Sex: Male
  Weight: 73.03 kg

DRUGS (1)
  1. ALBUTEROL. [Suspect]
     Active Substance: ALBUTEROL
     Dosage: ?          OTHER DOSE:2 PUFFS;OTHER
     Route: 055
     Dates: start: 20171205, end: 20180909

REACTIONS (2)
  - Dyspnoea [None]
  - Therapeutic product effect decreased [None]

NARRATIVE: CASE EVENT DATE: 20180905
